FAERS Safety Report 4508352-9 (Version None)
Quarter: 2004Q4

REPORT INFORMATION
  Report Type: 
  Country: None (occurrence: None)
  Receive Date: 20041123
  Receipt Date: 20040116
  Transmission Date: 20050328
  Serious: No
  Sender: FDA-Public Use
  Company Number: US-GLAXOSMITHKLINE-A0493579A

PATIENT
  Age: 40 Year
  Sex: Male
  Weight: 82.3 kg

DRUGS (3)
  1. WELLBUTRIN SR [Suspect]
     Indication: ILL-DEFINED DISORDER
     Dosage: 150MG UNKNOWN
     Route: 048
     Dates: start: 20040113, end: 20040124
  2. PAXIL [Concomitant]
     Indication: DEPRESSION
     Dosage: 25MG UNKNOWN
     Route: 048
  3. TOPROL-XL [Concomitant]
     Indication: HYPERTENSION
     Dosage: 100MG UNKNOWN
     Route: 065

REACTIONS (1)
  - URTICARIA [None]
